FAERS Safety Report 12289990 (Version 2)
Quarter: 2016Q2

REPORT INFORMATION
  Report Type: Spontaneous
  Country: US (occurrence: US)
  Receive Date: 20160421
  Receipt Date: 20160526
  Transmission Date: 20160815
  Serious: Yes (Hospitalization, Other)
  Sender: FDA-Public Use
  Company Number: US-GLAXOSMITHKLINE-US2016055154

PATIENT
  Sex: Female

DRUGS (16)
  1. COREG CR [Suspect]
     Active Substance: CARVEDILOL PHOSPHATE
     Indication: CARDIAC FAILURE CONGESTIVE
     Dosage: 80 MG, QD
     Route: 048
     Dates: start: 2015
  2. ELIQUIS [Concomitant]
     Active Substance: APIXABAN
  3. COREG CR [Suspect]
     Active Substance: CARVEDILOL PHOSPHATE
     Dosage: 20 MG, QD
     Route: 048
  4. VITAMIN B12 [Concomitant]
     Active Substance: CYANOCOBALAMIN
  5. AMIODARONE [Concomitant]
     Active Substance: AMIODARONE
  6. ASPIRIN. [Concomitant]
     Active Substance: ASPIRIN
  7. VITAMIN D3 [Concomitant]
     Active Substance: CHOLECALCIFEROL
  8. RAMIPRIL. [Concomitant]
     Active Substance: RAMIPRIL
  9. KLOR-CON [Concomitant]
     Active Substance: POTASSIUM CHLORIDE
  10. COREG CR [Suspect]
     Active Substance: CARVEDILOL PHOSPHATE
     Dosage: UNK
  11. FERROUS SULFATE. [Concomitant]
     Active Substance: FERROUS SULFATE
  12. IMDUR [Concomitant]
     Active Substance: ISOSORBIDE MONONITRATE
  13. LASIX [Concomitant]
     Active Substance: FUROSEMIDE
  14. DIGOXIN. [Concomitant]
     Active Substance: DIGOXIN
  15. AMLODIPINE [Concomitant]
     Active Substance: AMLODIPINE BESYLATE
  16. LIPITOR [Concomitant]
     Active Substance: ATORVASTATIN CALCIUM

REACTIONS (9)
  - Cardiac failure [Unknown]
  - Arteriovenous fistula operation [Unknown]
  - Living in residential institution [Unknown]
  - Emergency care examination [Unknown]
  - Renal failure [Recovering/Resolving]
  - Central venous catheterisation [Unknown]
  - Dialysis [Recovering/Resolving]
  - Peripheral swelling [Recovered/Resolved]
  - Arteriovenous fistula site complication [Unknown]

NARRATIVE: CASE EVENT DATE: 150012
